FAERS Safety Report 8306904-1 (Version None)
Quarter: 2012Q2

REPORT INFORMATION
  Report Type: 
  Country: None (occurrence: None)
  Receive Date: 20120424
  Receipt Date: 20120412
  Transmission Date: 20120825
  Serious: Yes (Hospitalization)
  Sender: FDA-Public Use
  Company Number: US-JNJFOC-20110812861

PATIENT
  Sex: Female
  Weight: 35.7 kg

DRUGS (10)
  1. REMICADE [Suspect]
     Indication: INFLAMMATORY BOWEL DISEASE
     Route: 042
     Dates: start: 20070802, end: 20080709
  2. OXYCODONE HCL [Concomitant]
  3. CIMZIA [Concomitant]
     Dates: start: 20100521
  4. HYDROCORTISONE [Concomitant]
  5. DOCUSATE SODIUM [Concomitant]
  6. FERROUS SULFATE TAB [Concomitant]
  7. REMICADE [Suspect]
     Indication: CROHN'S DISEASE
     Route: 042
     Dates: start: 20070802, end: 20080709
  8. CITALOPRAM HYDROBROMIDE [Concomitant]
  9. MAGNESIUM OXIDE [Concomitant]
  10. ADALIMUMAB [Concomitant]

REACTIONS (1)
  - CROHN'S DISEASE [None]
